FAERS Safety Report 15974849 (Version 4)
Quarter: 2019Q1

REPORT INFORMATION
  Report Type: Spontaneous
  Country: US (occurrence: US)
  Receive Date: 20190218
  Receipt Date: 20190304
  Transmission Date: 20190418
  Serious: Yes (Death, Hospitalization, Other)
  Sender: FDA-Public Use
  Company Number: US-AMGEN-USASP2019025472

PATIENT
  Age: 74 Year
  Sex: Male
  Weight: 70 kg

DRUGS (2)
  1. KYPROLIS [Suspect]
     Active Substance: CARFILZOMIB
     Dosage: 70 MG/M2, (149) (OVER 30 MIN)
     Route: 042
     Dates: start: 20190107, end: 20190107
  2. KYPROLIS [Suspect]
     Active Substance: CARFILZOMIB
     Indication: PLASMA CELL MYELOMA
     Dosage: 20 MG/M2, (43 MG) UNK
     Route: 042
     Dates: start: 20181228

REACTIONS (5)
  - Atrial fibrillation [Fatal]
  - Acute respiratory distress syndrome [Fatal]
  - Escherichia sepsis [Fatal]
  - Pneumonia [Fatal]
  - Acute kidney injury [Fatal]

NARRATIVE: CASE EVENT DATE: 201901
